FAERS Safety Report 4611131-5 (Version None)
Quarter: 2005Q1

REPORT INFORMATION
  Report Type: 
  Country: None (occurrence: None)
  Receive Date: 20050317
  Receipt Date: 20050304
  Transmission Date: 20050727
  Serious: Yes (Hospitalization, Other)
  Sender: FDA-Public Use
  Company Number: FR-JNJFOC-20050101832

PATIENT
  Age: 58 Year
  Sex: Female
  Weight: 46 kg

DRUGS (6)
  1. DOXORUBICIN HCL [Suspect]
     Route: 042
  2. RADIATION THERAPY [Concomitant]
     Dosage: 3 GY PER CYCLE X 10 CYCLES
  3. TAXOTERE [Concomitant]
     Route: 042
  4. BECILAN [Concomitant]
     Route: 049
  5. FORADIL [Concomitant]
     Indication: ASTHMA
  6. BECLOMETHASONE DIPROPIONATE [Concomitant]
     Indication: ASTHMA
     Route: 049

REACTIONS (1)
  - RECALL PHENOMENON [None]
